FAERS Safety Report 16180971 (Version 1)
Quarter: 2019Q2

REPORT INFORMATION
  Report Type: Spontaneous
  Country: BR (occurrence: BR)
  Receive Date: 20190410
  Receipt Date: 20190410
  Transmission Date: 20190711
  Serious: Yes (Other)
  Sender: FDA-Public Use
  Company Number: BR-PFIZER INC-2012316856

PATIENT
  Age: 44 Year
  Sex: Female
  Weight: 72 kg

DRUGS (4)
  1. PROPOFOL. [Suspect]
     Active Substance: PROPOFOL
     Indication: GENERAL ANAESTHESIA
     Dosage: 180 MG, UNK
  2. FENTANYL. [Suspect]
     Active Substance: FENTANYL
     Indication: GENERAL ANAESTHESIA
     Dosage: 250 UG, UNK
  3. MIDAZOLAM HCL [Suspect]
     Active Substance: MIDAZOLAM HYDROCHLORIDE
     Indication: GENERAL ANAESTHESIA
     Dosage: 3 MG, UNK
  4. ROCURONIUM [Suspect]
     Active Substance: ROCURONIUM BROMIDE
     Indication: GENERAL ANAESTHESIA
     Dosage: 30 MG, UNK

REACTIONS (4)
  - Cardiac arrest [Recovered/Resolved]
  - Ventricular tachycardia [Recovered/Resolved]
  - Bradycardia [Unknown]
  - Hypotension [Unknown]
